FAERS Safety Report 7973399-7 (Version None)
Quarter: 2011Q4

REPORT INFORMATION
  Report Type: 
  Country: None (occurrence: None)
  Receive Date: 20111213
  Receipt Date: 20111021
  Transmission Date: 20120403
  Serious: No
  Sender: FDA-Public Use
  Company Number: US-AMGEN-USASP2011054822

PATIENT
  Age: 63 Year
  Sex: Female

DRUGS (1)
  1. ARANESP [Suspect]
     Indication: RENAL FAILURE CHRONIC
     Dosage: 100 MUG, UNK

REACTIONS (2)
  - FATIGUE [None]
  - HAEMOGLOBIN DECREASED [None]
